FAERS Safety Report 17093915 (Version 2)
Quarter: 2019Q4

REPORT INFORMATION
  Report Type: Spontaneous
  Country: DE (occurrence: DE)
  Receive Date: 20191129
  Receipt Date: 20191203
  Transmission Date: 20200122
  Serious: Yes (Hospitalization)
  Sender: FDA-Public Use
  Company Number: DE-MYLANLABS-2019M1115479

PATIENT
  Age: 60 Year
  Sex: Male

DRUGS (11)
  1. FOLINSAEURE [Suspect]
     Active Substance: LEUCOVORIN
     Indication: PRODUCT USED FOR UNKNOWN INDICATION
     Dosage: NK MG, ZULETZT AM 20.10.2017
  2. METOBETA [Concomitant]
     Active Substance: METOPROLOL TARTRATE
     Dosage: 50 MILLIGRAM,  1-0-1-0
  3. TRI-NORMIN [Concomitant]
     Active Substance: ATENOLOL\CHLORTHALIDONE\HYDRALAZINE HYDROCHLORIDE
     Dosage: ,25|25|12.5 MG, 1-0-0-0
  4. OXALIPLATIN. [Suspect]
     Active Substance: OXALIPLATIN
     Indication: PRODUCT USED FOR UNKNOWN INDICATION
     Dosage: NK MG, ZULETZT AM 20.10.2017
  5. NAC                                /00082801/ [Concomitant]
     Active Substance: ACETYLCYSTEINE
     Dosage: 600 MILLIGRAM,1-0-0-0
  6. CANDESARTAN. [Concomitant]
     Active Substance: CANDESARTAN
     Dosage: 16 MILLIGRAM,  1-0-0-0
  7. TORASEMID-1A PHARMA [Concomitant]
     Active Substance: TORSEMIDE
     Dosage: 10 MILLIGRAM, 1-0-0-0
  8. AMLODIPIN                          /00972401/ [Concomitant]
     Active Substance: AMLODIPINE BESYLATE
     Dosage: 10 MILLIGRAM,  0-0-1-0
  9. CLEXANE [Concomitant]
     Active Substance: ENOXAPARIN SODIUM
     Dosage: 100 MILLIGRAM, 1-0-0-0
     Route: 058
  10. MOXONIDIN HEUMANN [Concomitant]
     Dosage: 0.30 MILLIGRAM,  1-0-1-0
  11. FLUOROURACIL. [Suspect]
     Active Substance: FLUOROURACIL
     Indication: PRODUCT USED FOR UNKNOWN INDICATION
     Dosage: NK MG, ZULETZT AM 20.10.2017

REACTIONS (1)
  - Constipation [Unknown]

NARRATIVE: CASE EVENT DATE: 20171019
